FAERS Safety Report 12192731 (Version 2)
Quarter: 2016Q2

REPORT INFORMATION
  Report Type: Spontaneous
  Country: US (occurrence: US)
  Receive Date: 20160318
  Receipt Date: 20160414
  Transmission Date: 20160815
  Serious: Yes (Death, Hospitalization, Other)
  Sender: FDA-Public Use
  Company Number: US-ABBVIE-16P-163-1585090-00

PATIENT
  Age: 64 Year
  Sex: Male

DRUGS (7)
  1. OXYCONTIN [Concomitant]
     Active Substance: OXYCODONE HYDROCHLORIDE
     Indication: PRODUCT USED FOR UNKNOWN INDICATION
     Route: 065
  2. PREDNISONE. [Concomitant]
     Active Substance: PREDNISONE
     Indication: PRODUCT USED FOR UNKNOWN INDICATION
     Route: 065
  3. XTANDI [Suspect]
     Active Substance: ENZALUTAMIDE
     Indication: PROSTATE CANCER
     Route: 065
     Dates: start: 20151104, end: 201512
  4. LUPRON [Suspect]
     Active Substance: LEUPROLIDE ACETATE
     Indication: PRODUCT USED FOR UNKNOWN INDICATION
     Route: 065
  5. ROXANOL [Concomitant]
     Active Substance: MORPHINE SULFATE
     Indication: PRODUCT USED FOR UNKNOWN INDICATION
     Route: 065
  6. MORPHINE [Concomitant]
     Active Substance: MORPHINE
     Indication: PRODUCT USED FOR UNKNOWN INDICATION
     Route: 065
  7. MEGACE [Concomitant]
     Active Substance: MEGESTROL ACETATE
     Indication: PRODUCT USED FOR UNKNOWN INDICATION
     Route: 065

REACTIONS (22)
  - Back pain [Unknown]
  - Confusional state [Unknown]
  - Rash [Unknown]
  - Surgery [Unknown]
  - Anxiety [Unknown]
  - Arthralgia [Unknown]
  - Dyspnoea [Unknown]
  - Oedema peripheral [Unknown]
  - Metastases to spine [Unknown]
  - Hereditary non-polyposis colorectal cancer syndrome [Not Recovered/Not Resolved]
  - Chest pain [Unknown]
  - Pain in extremity [Unknown]
  - Paraesthesia [Unknown]
  - Malignant neoplasm progression [Fatal]
  - Gait disturbance [Unknown]
  - Flank pain [Unknown]
  - Decreased appetite [Unknown]
  - Organ failure [Fatal]
  - Muscular weakness [Unknown]
  - Back pain [Unknown]
  - Chills [Unknown]
  - Myalgia [Unknown]

NARRATIVE: CASE EVENT DATE: 20151112
